FAERS Safety Report 12262302 (Version 1)
Quarter: 2016Q2

REPORT INFORMATION
  Report Type: Spontaneous
  Country: RS (occurrence: RS)
  Receive Date: 20160413
  Receipt Date: 20160413
  Transmission Date: 20160815
  Serious: Yes (Death, Other)
  Sender: FDA-Public Use
  Company Number: RS-MYLANLABS-2016M1015110

PATIENT

DRUGS (20)
  1. TIENAM [Concomitant]
     Active Substance: CILASTATIN SODIUM\IMIPENEM
     Indication: ACUTE MYOCARDIAL INFARCTION
     Route: 065
  2. VEPESIDE [Concomitant]
     Active Substance: ETOPOSIDE
     Indication: ACUTE LYMPHOCYTIC LEUKAEMIA
     Route: 065
  3. VANCOMYCIN [Concomitant]
     Active Substance: VANCOMYCIN
     Indication: PYREXIA
     Route: 065
  4. CARVEDILOL. [Concomitant]
     Active Substance: CARVEDILOL
     Indication: ACUTE MYOCARDIAL INFARCTION
     Dosage: 12.5MG (2 X1/4 TAB)
     Route: 050
  5. VINCRISTINE [Suspect]
     Active Substance: VINCRISTINE
     Indication: ACUTE LYMPHOCYTIC LEUKAEMIA
     Dosage: 2MG IN DAY 4 AND DAY 11
     Dates: start: 20120505
  6. CYCLOPHOSPHAMIDE. [Concomitant]
     Active Substance: CYCLOPHOSPHAMIDE
     Indication: ACUTE LYMPHOCYTIC LEUKAEMIA
     Dosage: 600 MG IN DAY1, DAY2 AND DAY3
     Route: 065
     Dates: start: 20120505
  7. DEXASONE                           /00016001/ [Concomitant]
     Active Substance: DEXAMETHASONE
     Indication: ACUTE LYMPHOCYTIC LEUKAEMIA
     Dosage: 40 MG IN D1 D14
     Route: 065
     Dates: start: 20120505
  8. DIFLUCAN [Concomitant]
     Active Substance: FLUCONAZOLE
     Indication: PYREXIA
     Route: 065
  9. NITROGLYCERIN. [Concomitant]
     Active Substance: NITROGLYCERIN
     Indication: ACUTE MYOCARDIAL INFARCTION
     Route: 065
  10. CARDIOPIRIN [Suspect]
     Active Substance: ASPIRIN
     Indication: DEEP VEIN THROMBOSIS
     Route: 065
  11. ACICLOVIR [Concomitant]
     Active Substance: ACYCLOVIR
     Indication: ACUTE MYOCARDIAL INFARCTION
     Route: 065
  12. MITOXANTRONE [Concomitant]
     Active Substance: MITOXANTRONE HYDROCHLORIDE
     Indication: ACUTE LYMPHOCYTIC LEUKAEMIA
     Route: 065
  13. DAUNORUBICIN [Suspect]
     Active Substance: DAUNORUBICIN
     Indication: ACUTE LYMPHOCYTIC LEUKAEMIA
     Dosage: 40 MG IN DAY 4
     Route: 065
     Dates: start: 20120505
  14. CIPROCINAL [Concomitant]
     Active Substance: CIPROFLOXACIN
     Indication: ACUTE MYOCARDIAL INFARCTION
     Route: 065
  15. CYTOSAR [Concomitant]
     Active Substance: CYTARABINE
     Indication: ACUTE LYMPHOCYTIC LEUKAEMIA
     Dosage: 2X6G ON D2 AND D3 (HYPER-CVAD CHEMOTHERAPY)
     Route: 065
  16. PREDNISOLONE. [Suspect]
     Active Substance: PREDNISOLONE
     Indication: ACUTE LYMPHOCYTIC LEUKAEMIA
     Route: 065
  17. MERCAPTOPURINE. [Concomitant]
     Active Substance: MERCAPTOPURINE
     Indication: ACUTE LYMPHOCYTIC LEUKAEMIA
     Route: 065
  18. MERONEM [Concomitant]
     Active Substance: MEROPENEM
     Indication: PYREXIA
     Route: 065
  19. DOPAMINE [Concomitant]
     Active Substance: DOPAMINE\DOPAMINE HYDROCHLORIDE
     Dosage: INFUSION
     Route: 050
  20. METHOTREXATE [Concomitant]
     Active Substance: METHOTREXATE
     Indication: ACUTE LYMPHOCYTIC LEUKAEMIA
     Dosage: 2,000MG ON DAY 1
     Route: 065

REACTIONS (3)
  - Acute myocardial infarction [Recovered/Resolved]
  - Atrioventricular block second degree [Recovered/Resolved]
  - Haemorrhage [Fatal]

NARRATIVE: CASE EVENT DATE: 20120515
